FAERS Safety Report 4375725-7 (Version None)
Quarter: 2004Q2

REPORT INFORMATION
  Report Type: 
  Country: None (occurrence: None)
  Receive Date: 20040608
  Receipt Date: 20030204
  Transmission Date: 20050107
  Serious: Yes (Other)
  Sender: FDA-Public Use
  Company Number: 200310395BCC

PATIENT
  Age: 30 Year
  Sex: Female
  Weight: 74.8435 kg

DRUGS (1)
  1. ALEVE [Suspect]
     Indication: ARTHRALGIA
     Dosage: 660 MG, ONCE, ORAL
     Route: 048
     Dates: start: 20030202

REACTIONS (4)
  - DYSPNOEA [None]
  - GASTRIC DISORDER [None]
  - JAW DISORDER [None]
  - ORAL DISCOMFORT [None]
